FAERS Safety Report 4626713-4 (Version None)
Quarter: 2005Q2

REPORT INFORMATION
  Report Type: 
  Country: None (occurrence: None)
  Receive Date: 20050405
  Receipt Date: 20050225
  Transmission Date: 20051028
  Serious: No
  Sender: FDA-Public Use
  Company Number: DE-SOLVAY-00305000690

PATIENT
  Age: 21731 Day
  Sex: Male
  Weight: 90 kg

DRUGS (3)
  1. VITAMIN B-12 [Concomitant]
     Indication: ILL-DEFINED DISORDER
     Dosage: DAILY DOSE:  UNKNOWN
     Route: 065
  2. ANDROTOP GEL [Suspect]
     Indication: HYPOGONADISM
     Dosage: DAILY DOSE: 50 MILLIGRAM(S)
     Route: 061
     Dates: start: 20030630, end: 20050222
  3. VITAMIN B6 [Concomitant]
     Indication: ILL-DEFINED DISORDER
     Dosage: DAILY DOSE:  UNKNOWN
     Route: 065

REACTIONS (1)
  - BLOOD TESTOSTERONE INCREASED [None]
